FAERS Safety Report 7415965-3 (Version None)
Quarter: 2011Q2

REPORT INFORMATION
  Report Type: 
  Country: None (occurrence: None)
  Receive Date: 20110414
  Receipt Date: 20090925
  Transmission Date: 20111010
  Serious: Yes (Other)
  Sender: FDA-Public Use
  Company Number: PHHY2009DE46434

PATIENT
  Sex: Female

DRUGS (2)
  1. EXTAVIA [Suspect]
     Indication: MULTIPLE SCLEROSIS
     Dosage: 250 UG, QOD
     Route: 058
     Dates: start: 20090501
  2. ANTIHYPERTENSIVE DRUGS [Concomitant]
     Route: 048

REACTIONS (3)
  - PRURITUS [None]
  - ERYTHEMA [None]
  - NASOPHARYNGITIS [None]
